FAERS Safety Report 5924035-2 (Version None)
Quarter: 2008Q4

REPORT INFORMATION
  Report Type: 
  Country: None (occurrence: None)
  Receive Date: 20081020
  Receipt Date: 20081014
  Transmission Date: 20090506
  Serious: Yes (Hospitalization)
  Sender: FDA-Public Use
  Company Number: PHEH2008US08753

PATIENT
  Sex: Male
  Weight: 72.7 kg

DRUGS (5)
  1. GLEEVEC [Suspect]
     Indication: HYPEREOSINOPHILIC SYNDROME
     Dosage: 100 MG, QD
     Route: 048
     Dates: start: 20080401, end: 20080901
  2. PREDNISONE TAB [Concomitant]
     Dosage: TAPER
     Route: 048
  3. ALENDRONATE SODIUM [Concomitant]
     Indication: OSTEOPENIA
     Dosage: 70 WEEKLY
     Route: 048
  4. ASPIRIN [Concomitant]
     Indication: CORONARY ARTERY DISEASE
     Dosage: 81 DAILY
     Route: 048
  5. LISINOPRIL [Concomitant]
     Indication: CARDIAC FAILURE CONGESTIVE
     Dosage: 2.5 DAILY
     Route: 048

REACTIONS (7)
  - CARDIAC FAILURE [None]
  - CARDIAC FAILURE CONGESTIVE [None]
  - DRUG INEFFECTIVE [None]
  - DYSPNOEA [None]
  - EXPIRED DRUG ADMINISTERED [None]
  - PERIORBITAL OEDEMA [None]
  - RESPIRATORY DISORDER [None]
